FAERS Safety Report 12414535 (Version 1)
Quarter: 2016Q2

REPORT INFORMATION
  Report Type: Spontaneous
  Country: US (occurrence: US)
  Receive Date: 20160528
  Receipt Date: 20160528
  Transmission Date: 20160815
  Serious: Yes (Other)
  Sender: FDA-Public Use
  Company Number: US-AXELLIA-000931

PATIENT
  Age: 35 Year
  Sex: Female
  Weight: 75.5 kg

DRUGS (5)
  1. APIXABAN [Concomitant]
     Active Substance: APIXABAN
  2. ERYTHROMYCIN. [Concomitant]
     Active Substance: ERYTHROMYCIN
  3. CLONAZEPAM. [Concomitant]
     Active Substance: CLONAZEPAM
  4. POLYMYXIN B. [Suspect]
     Active Substance: POLYMYXIN B
     Indication: CYSTIC FIBROSIS
     Dosage: 1.2 M UNITS ONCE, LOADING DOSE (STRENGTH : 500,000 UNITS PER VIAL)
     Route: 042
     Dates: start: 20160509, end: 20160509
  5. COLISTIN [Concomitant]
     Active Substance: COLISTIN
     Dosage: INHALER

REACTIONS (3)
  - Hypoaesthesia oral [Recovered/Resolved]
  - Pruritus generalised [Recovered/Resolved]
  - Off label use [Unknown]

NARRATIVE: CASE EVENT DATE: 20160509
